FAERS Safety Report 4946255-6 (Version None)
Quarter: 2006Q1

REPORT INFORMATION
  Report Type: 
  Country: None (occurrence: None)
  Receive Date: 20060317
  Receipt Date: 20060308
  Transmission Date: 20060701
  Serious: Yes (Death)
  Sender: FDA-Public Use
  Company Number: US-SANOFI-SYNTHELABO-A03200601248

PATIENT
  Sex: Female
  Weight: 76.64 kg

DRUGS (10)
  1. PLAVIX [Suspect]
     Indication: ANTICOAGULANT THERAPY
     Route: 048
  2. GLUCOTROL XL [Concomitant]
     Route: 048
  3. PLENDIL [Concomitant]
     Route: 048
  4. HYDROXYZINE [Concomitant]
     Route: 048
  5. HYDROCHLOROTHIAZIDE [Concomitant]
     Route: 048
  6. DIOVAN [Concomitant]
     Route: 048
  7. SYNTHROID [Concomitant]
     Route: 048
  8. TENEX [Concomitant]
     Route: 048
  9. ACIPHEX [Concomitant]
     Route: 048
  10. REGLAN [Concomitant]
     Route: 048

REACTIONS (1)
  - ARTHRITIS BACTERIAL [None]
